FAERS Safety Report 8935197 (Version 1)
Quarter: 2012Q4

REPORT INFORMATION
  Report Type: 
  Country: ES (occurrence: ES)
  Receive Date: 20121129
  Receipt Date: 20121129
  Transmission Date: 20130627
  Serious: Yes (Death)
  Sender: FDA-Public Use
  Company Number: ES-ELI_LILLY_AND_COMPANY-ES201211006112

PATIENT
  Age: 78 Year
  Sex: Male

DRUGS (1)
  1. FORSTEO [Suspect]
     Dosage: UNK
     Dates: end: 201208

REACTIONS (2)
  - Death [Fatal]
  - Respiratory tract infection [Unknown]
